FAERS Safety Report 4902331-5 (Version None)
Quarter: 2006Q1

REPORT INFORMATION
  Report Type: 
  Country: None (occurrence: None)
  Receive Date: 20060202
  Receipt Date: 20060117
  Transmission Date: 20060701
  Serious: Yes (Other)
  Sender: FDA-Public Use
  Company Number: A-CH2005-11228

PATIENT
  Age: 89 Year
  Sex: Female
  Weight: 58.4 kg

DRUGS (7)
  1. TRACLEER [Suspect]
     Dosage: 62.5 MG, BID, ORAL
     Route: 048
     Dates: end: 20051209
  2. DIOVAN ^CIBA-GEIGY^ (VALSARTAN) [Concomitant]
  3. TOREM (TORASEMIDE) [Concomitant]
  4. SPIRONOLACTONE [Concomitant]
  5. TREVILOR (VENLAFAXINE HYDROCHLORIDE) [Concomitant]
  6. LORAZEPAM [Concomitant]
  7. BISOPROLOL FUMARATE [Concomitant]

REACTIONS (5)
  - ALANINE AMINOTRANSFERASE INCREASED [None]
  - ASPARTATE AMINOTRANSFERASE INCREASED [None]
  - BLOOD ALKALINE PHOSPHATASE INCREASED [None]
  - BLOOD BILIRUBIN INCREASED [None]
  - GAMMA-GLUTAMYLTRANSFERASE INCREASED [None]
